FAERS Safety Report 16731914 (Version 1)
Quarter: 2019Q3

REPORT INFORMATION
  Report Type: Spontaneous
  Country: US (occurrence: US)
  Receive Date: 20190822
  Receipt Date: 20190822
  Transmission Date: 20191005
  Serious: No
  Sender: FDA-Public Use
  Company Number: US-RISING PHARMACEUTICALS, INC.-2019RIS00415

PATIENT
  Age: 27 Year
  Sex: Female
  Weight: 111.11 kg

DRUGS (3)
  1. PROCTOZONE-HC [Suspect]
     Active Substance: HYDROCORTISONE
     Indication: HAEMORRHOIDS
     Dosage: 1 DOSAGE UNITS, 1X/DAY AT NIGHT
     Route: 061
     Dates: start: 20190725, end: 20190725
  2. PROCTOZONE-HC [Suspect]
     Active Substance: HYDROCORTISONE
     Dosage: 1 DOSAGE UNITS, 2X/DAY
     Route: 061
     Dates: start: 20190726, end: 20190726
  3. PROCTOZONE-HC [Suspect]
     Active Substance: HYDROCORTISONE
     Dosage: 1 DOSAGE UNITS, 1X/DAY IN THE MORNING
     Route: 061
     Dates: start: 20190727, end: 20190727

REACTIONS (3)
  - Gait disturbance [Recovering/Resolving]
  - Burning sensation [Recovered/Resolved]
  - Skin irritation [Recovering/Resolving]

NARRATIVE: CASE EVENT DATE: 20190726
